FAERS Safety Report 18586223 (Version 1)
Quarter: 2020Q4

REPORT INFORMATION
  Report Type: Spontaneous
  Country: US (occurrence: US)
  Receive Date: 20201207
  Receipt Date: 20201207
  Transmission Date: 20210114
  Serious: No
  Sender: FDA-Public Use
  Company Number: US-PFIZER INC-2020478065

PATIENT
  Age: 72 Year
  Sex: Female

DRUGS (1)
  1. IBRANCE [Suspect]
     Active Substance: PALBOCICLIB
     Indication: BREAST CANCER FEMALE
     Dosage: 125 MG
     Dates: start: 2017

REACTIONS (6)
  - Myalgia [Unknown]
  - Diarrhoea [Unknown]
  - Oral pain [Unknown]
  - Alopecia [Unknown]
  - Fatigue [Unknown]
  - Epistaxis [Unknown]
